FAERS Safety Report 17963589 (Version 2)
Quarter: 2020Q3

REPORT INFORMATION
  Report Type: Report from Study
  Country: ES (occurrence: ES)
  Receive Date: 20200630
  Receipt Date: 20200922
  Transmission Date: 20201103
  Serious: Yes (Hospitalization)
  Sender: FDA-Public Use
  Company Number: ES-JNJFOC-20200635486

PATIENT
  Age: 72 Year
  Sex: Female
  Weight: 58.1 kg

DRUGS (14)
  1. JNJ?64007957 [Suspect]
     Active Substance: TECLISTAMAB
     Dosage: CYCLE 1 DAY 15
     Route: 042
     Dates: start: 20200617, end: 20200617
  2. ATORVASTATIN CALCIUM. [Concomitant]
     Active Substance: ATORVASTATIN CALCIUM
     Route: 048
     Dates: start: 2015
  3. CALCIUM                            /00060701/ [Concomitant]
     Active Substance: CALCIUM
     Indication: HYPOCALCAEMIA
     Route: 048
     Dates: start: 2010
  4. DARATUMUMAB [Suspect]
     Active Substance: DARATUMUMAB
     Indication: PLASMA CELL MYELOMA
     Dosage: MED KIT 100388
     Route: 058
     Dates: start: 20200518
  5. FENTANYL. [Concomitant]
     Active Substance: FENTANYL
     Indication: HEADACHE
     Dosage: DOSE 50
     Route: 062
     Dates: start: 20190820
  6. LORAZEPAM. [Concomitant]
     Active Substance: LORAZEPAM
     Indication: PROPHYLAXIS
     Route: 048
     Dates: start: 2010
  7. ENOXAPARIN SODIUM. [Concomitant]
     Active Substance: ENOXAPARIN SODIUM
     Indication: THROMBOSIS PROPHYLAXIS
     Dosage: DOSE 60
     Route: 058
     Dates: start: 20200518
  8. SULFAMETHOXAZOLE AND TRIMETHOPRIM [Concomitant]
     Active Substance: SULFAMETHOXAZOLE\TRIMETHOPRIM
     Indication: INFECTION PROPHYLAXIS
     Dosage: DOSE 800/160
     Route: 048
     Dates: start: 2010
  9. JNJ?64007957 [Suspect]
     Active Substance: TECLISTAMAB
     Indication: PLASMA CELL MYELOMA
     Dosage: MED KIT  350445; CYCLE 1 DAY 5
     Route: 042
     Dates: start: 20200609, end: 20200609
  10. ACYCLOVIR                          /00587301/ [Concomitant]
     Active Substance: ACYCLOVIR
     Indication: INFECTION PROPHYLAXIS
     Route: 048
     Dates: start: 2010
  11. JNJ?64007957 [Suspect]
     Active Substance: TECLISTAMAB
     Dosage: CYCLE 1 DAY 11
     Route: 042
     Dates: start: 20200611, end: 20200611
  12. BISOPROLOL FUMARATE. [Concomitant]
     Active Substance: BISOPROLOL FUMARATE
     Indication: CARDIOVASCULAR EVENT PROPHYLAXIS
     Route: 048
     Dates: start: 2015
  13. OMEPRAZOLE. [Concomitant]
     Active Substance: OMEPRAZOLE
     Indication: GASTROINTESTINAL DISORDER THERAPY
     Route: 048
     Dates: start: 2010
  14. MULTIVITAMINS                      /00116001/ [Concomitant]
     Active Substance: VITAMINS
     Indication: NUTRITIONAL SUPPLEMENTATION
     Route: 048
     Dates: start: 2019

REACTIONS (1)
  - Cytokine release syndrome [Recovered/Resolved]

NARRATIVE: CASE EVENT DATE: 20200619
